FAERS Safety Report 6181097-8 (Version None)
Quarter: 2009Q2

REPORT INFORMATION
  Report Type: 
  Country: None (occurrence: None)
  Receive Date: 20090501
  Receipt Date: 20090304
  Transmission Date: 20091009
  Serious: Yes (Hospitalization)
  Sender: FDA-Public Use
  Company Number: US025354

PATIENT
  Age: 81 Year
  Sex: Male
  Weight: 67 kg

DRUGS (4)
  1. TREANDA [Suspect]
     Indication: CHRONIC LYMPHOCYTIC LEUKAEMIA
     Dosage: CYCLIC (70 MG/M2) , INTRAVENOUS
     Route: 042
     Dates: start: 20081203, end: 20090105
  2. AMIODARONE HCL [Concomitant]
  3. FOLIC ACID [Concomitant]
  4. TESTOSTERONE [Concomitant]

REACTIONS (1)
  - HAEMOGLOBIN DECREASED [None]
